FAERS Safety Report 7677984-1 (Version None)
Quarter: 2011Q3

REPORT INFORMATION
  Report Type: 
  Country: None (occurrence: None)
  Receive Date: 20110811
  Receipt Date: 20110803
  Transmission Date: 20111222
  Serious: Yes (Hospitalization)
  Sender: FDA-Public Use
  Company Number: US-GLAXOSMITHKLINE-A0937527A

PATIENT
  Age: 65 Year
  Sex: Male

DRUGS (1)
  1. VOTRIENT [Suspect]
     Indication: RENAL CANCER
     Dosage: 400MG TWICE PER DAY
     Route: 065
     Dates: start: 20101001

REACTIONS (10)
  - PIGMENTATION DISORDER [None]
  - ASTHENIA [None]
  - SEPSIS [None]
  - DYSGEUSIA [None]
  - BLOOD URINE PRESENT [None]
  - EPISTAXIS [None]
  - BLOOD PRESSURE INCREASED [None]
  - INAPPROPRIATE SCHEDULE OF DRUG ADMINISTRATION [None]
  - HAIR COLOUR CHANGES [None]
  - VISION BLURRED [None]
